FAERS Safety Report 17238605 (Version 1)
Quarter: 2020Q1

REPORT INFORMATION
  Report Type: Spontaneous
  Country: FR (occurrence: FR)
  Receive Date: 20200106
  Receipt Date: 20200106
  Transmission Date: 20200409
  Serious: Yes (Life-Threatening, Hospitalization, Other)
  Sender: FDA-Public Use
  Company Number: FR-MYLANLABS-2019M1068732

PATIENT
  Age: 74 Year
  Sex: Female
  Weight: 54 kg

DRUGS (7)
  1. EPINEPHRINE MYLAN [Suspect]
     Active Substance: EPINEPHRINE
     Indication: ANAPHYLACTIC REACTION
     Dosage: 10 MICROGRAM (ADMINISTERED THREE TIMES)
     Route: 042
  2. SUGAMMADEX [Concomitant]
     Active Substance: SUGAMMADEX
     Indication: ANAPHYLACTIC REACTION
     Dosage: 800 MILLIGRAM (15MG/KG)
     Route: 040
  3. SALBUTAMOL MYLAN [Suspect]
     Active Substance: ALBUTEROL
     Indication: ANAPHYLACTIC REACTION
     Dosage: 10 PUFFS
  4. PROPOFOL. [Concomitant]
     Active Substance: PROPOFOL
     Indication: INDUCTION OF ANAESTHESIA
     Dosage: UNK (TARGET-CONTROLLED INFUSIONS)
  5. EPINEPHRINE MYLAN [Suspect]
     Active Substance: EPINEPHRINE
     Dosage: 10 MICROGRAM
     Route: 042
  6. ROCURONIUM [Suspect]
     Active Substance: ROCURONIUM BROMIDE
     Indication: ANAESTHESIA PROCEDURE
     Dosage: 25 MG, UNK (0.46 MG.KG-1)
  7. REMIFENTANIL [Concomitant]
     Active Substance: REMIFENTANIL
     Indication: INDUCTION OF ANAESTHESIA
     Dosage: UNK (TARGET-CONTROLLED INFUSIONS)

REACTIONS (4)
  - Tachycardia [Unknown]
  - Hypertension [Unknown]
  - Anaphylactic reaction [Recovered/Resolved]
  - Drug ineffective [Unknown]
